FAERS Safety Report 21990842 (Version 2)
Quarter: 2023Q1

REPORT INFORMATION
  Report Type: Report from Study
  Country: US (occurrence: US)
  Receive Date: 20230214
  Receipt Date: 20230216
  Transmission Date: 20230417
  Serious: Yes (Other)
  Sender: FDA-Public Use
  Company Number: US-ABBVIE-22K-163-4404196-00

PATIENT
  Age: 57 Year
  Sex: Female
  Weight: 136 kg

DRUGS (13)
  1. HUMIRA [Suspect]
     Active Substance: ADALIMUMAB
     Indication: Psoriasis
     Dosage: CITRATE FREE.?FIRST ADMIN DATE OF HUMIRA WAS 2021
     Route: 058
     Dates: end: 202202
  2. HUMIRA [Suspect]
     Active Substance: ADALIMUMAB
     Indication: Rheumatoid arthritis
     Dosage: CITRATE FREE?LAST ADMIN DATE OF HUMIRA WAS 2021
     Route: 058
     Dates: start: 202105
  3. SKYRIZI [Suspect]
     Active Substance: RISANKIZUMAB-RZAA
     Indication: Product used for unknown indication
     Dosage: LOADING DOSE
     Route: 058
     Dates: start: 202206, end: 202206
  4. SKYRIZI [Suspect]
     Active Substance: RISANKIZUMAB-RZAA
     Dosage: INITIAL DOSE
     Route: 058
     Dates: start: 202205, end: 202205
  5. SKYRIZI [Suspect]
     Active Substance: RISANKIZUMAB-RZAA
     Route: 058
     Dates: start: 202301
  6. OXCARBAZEPINE [Concomitant]
     Active Substance: OXCARBAZEPINE
     Indication: Product used for unknown indication
  7. CYMBALTA [Concomitant]
     Active Substance: DULOXETINE HYDROCHLORIDE
     Indication: Product used for unknown indication
     Route: 065
  8. Vicodin with acetaminophen [Concomitant]
     Indication: Arthralgia
  9. MODERNA COVID-19 VACCINE [Concomitant]
     Active Substance: ELASOMERAN
     Indication: COVID-19 immunisation
     Dosage: TIME INTERVAL: 1 TOTAL: FIRST DOSE
     Route: 030
     Dates: start: 20200228, end: 20200228
  10. MODERNA COVID-19 VACCINE [Concomitant]
     Active Substance: ELASOMERAN
     Indication: COVID-19 immunisation
     Dosage: TIME INTERVAL: 1 TOTAL: SECOND DOSE
     Route: 030
     Dates: start: 202104, end: 202104
  11. MODERNA COVID-19 VACCINE [Concomitant]
     Active Substance: ELASOMERAN
     Indication: COVID-19 immunisation
     Dosage: TIME INTERVAL: 1 TOTAL: 3RD DOSE
     Route: 030
     Dates: start: 202210, end: 202210
  12. MONTELUKAST [Concomitant]
     Active Substance: MONTELUKAST SODIUM
     Indication: Asthma
  13. TIROSINT [Concomitant]
     Active Substance: LEVOTHYROXINE SODIUM
     Indication: Autoimmune thyroiditis

REACTIONS (23)
  - Arthralgia [Recovered/Resolved]
  - Joint swelling [Not Recovered/Not Resolved]
  - Joint effusion [Unknown]
  - Contusion [Not Recovered/Not Resolved]
  - Gait disturbance [Not Recovered/Not Resolved]
  - Contusion [Not Recovered/Not Resolved]
  - Contusion [Unknown]
  - Stress fracture [Not Recovered/Not Resolved]
  - Tendon laxity [Not Recovered/Not Resolved]
  - Neuropathy peripheral [Unknown]
  - Meniscus injury [Not Recovered/Not Resolved]
  - Condition aggravated [Unknown]
  - Erythema [Not Recovered/Not Resolved]
  - Tendon injury [Recovering/Resolving]
  - Venous haemorrhage [Unknown]
  - Cartilage injury [Unknown]
  - Arthralgia [Not Recovered/Not Resolved]
  - Tendon disorder [Recovering/Resolving]
  - Osteoarthritis [Recovered/Resolved]
  - Joint dislocation [Unknown]
  - Arthralgia [Recovered/Resolved]
  - C-reactive protein abnormal [Unknown]
  - Insomnia [Unknown]

NARRATIVE: CASE EVENT DATE: 20211101
